FAERS Safety Report 23172731 (Version 1)
Quarter: 2023Q4

REPORT INFORMATION
  Report Type: Spontaneous
  Country: GB (occurrence: GB)
  Receive Date: 20231110
  Receipt Date: 20231110
  Transmission Date: 20240110
  Serious: Yes (Other)
  Sender: FDA-Public Use
  Company Number: None

PATIENT
  Sex: Female

DRUGS (1)
  1. DOXYCYCLINE [Suspect]
     Active Substance: DOXYCYCLINE
     Indication: Product used for unknown indication
     Dosage: 200 MILLIGRAM DAILY; 100MG TWICE A DAY FOR 7 DAYS
     Route: 065
     Dates: start: 20231019

REACTIONS (2)
  - Abdominal pain [Unknown]
  - Oesophageal pain [Unknown]
